FAERS Safety Report 20851256 (Version 1)
Quarter: 2022Q2

REPORT INFORMATION
  Report Type: Spontaneous
  Country: FR (occurrence: FR)
  Receive Date: 20220519
  Receipt Date: 20220519
  Transmission Date: 20220721
  Serious: Yes (Hospitalization)
  Sender: FDA-Public Use
  Company Number: None

PATIENT
  Age: 70 Year
  Sex: Male

DRUGS (1)
  1. KEYTRUDA [Suspect]
     Active Substance: PEMBROLIZUMAB
     Indication: Malignant melanoma
     Dosage: 130 MILLIGRAM, CYCLICAL
     Route: 041
     Dates: start: 20180306

REACTIONS (1)
  - Transient acantholytic dermatosis [Recovered/Resolved]

NARRATIVE: CASE EVENT DATE: 20200309
